FAERS Safety Report 25449192 (Version 1)
Quarter: 2025Q2

REPORT INFORMATION
  Report Type: Report from Study
  Country: CO (occurrence: CO)
  Receive Date: 20250618
  Receipt Date: 20250618
  Transmission Date: 20250716
  Serious: Yes (Hospitalization)
  Sender: BIOVITRUM
  Company Number: CO-AstraZeneca-CH-00889577A

PATIENT
  Age: 3 Month
  Sex: Male
  Weight: 3.1 kg

DRUGS (1)
  1. PALIVIZUMAB [Suspect]
     Active Substance: PALIVIZUMAB
     Indication: Antiviral prophylaxis
     Route: 030
     Dates: start: 20250326

REACTIONS (4)
  - Anaemia [Recovering/Resolving]
  - Dyspnoea [Recovering/Resolving]
  - Pyrexia [Unknown]
  - Yellow skin [Unknown]

NARRATIVE: CASE EVENT DATE: 20250528
